FAERS Safety Report 10216690 (Version 1)
Quarter: 2014Q2

REPORT INFORMATION
  Report Type: Report from Study
  Country: US (occurrence: US)
  Receive Date: 20140604
  Receipt Date: 20140604
  Transmission Date: 20141212
  Serious: Yes (Hospitalization)
  Sender: FDA-Public Use
  Company Number: US-ACTELION-A-NJ2014-099621

PATIENT
  Age: 71 Year
  Sex: Male

DRUGS (6)
  1. TRACLEER [Suspect]
     Indication: PULMONARY ARTERIAL HYPERTENSION
     Dosage: 125 MG, BID
     Route: 048
  2. REVATIO [Concomitant]
     Dosage: 20 MG, TID
  3. METOPROLOL [Concomitant]
     Dosage: 50 MG, UNK
  4. XARELTO [Concomitant]
     Dosage: 20 MG, UNK
  5. OMEPRAZOLE [Concomitant]
     Dosage: 20 MG, UNK
  6. SIMVASTATIN [Concomitant]
     Dosage: 20 MG, UNK

REACTIONS (2)
  - Renal failure [Not Recovered/Not Resolved]
  - Fluid retention [Not Recovered/Not Resolved]
